FAERS Safety Report 6380778-0 (Version None)
Quarter: 2009Q3

REPORT INFORMATION
  Report Type: 
  Country: None (occurrence: None)
  Receive Date: 20090924
  Receipt Date: 20090908
  Transmission Date: 20100115
  Serious: Yes (Hospitalization)
  Sender: FDA-Public Use
  Company Number: 8052065

PATIENT
  Age: 11 Year
  Sex: Male

DRUGS (3)
  1. PREDNISOLONE [Suspect]
  2. PENICILLIN /00000901/ [Concomitant]
  3. ANALGESIA [Concomitant]

REACTIONS (1)
  - SERUM SICKNESS [None]
